FAERS Safety Report 6016661-X (Version None)
Quarter: 2008Q4

REPORT INFORMATION
  Report Type: 
  Country: None (occurrence: None)
  Receive Date: 20081218
  Receipt Date: 20081205
  Transmission Date: 20090506
  Serious: Yes (Death)
  Sender: FDA-Public Use
  Company Number: 2008003197

PATIENT
  Age: 65 Year
  Sex: Male

DRUGS (4)
  1. ERLOTINIB (ERLOTINIB) (TABLET) (ERLOTINIB) [Suspect]
     Indication: COLORECTAL CANCER METASTATIC
     Dosage: (25 MG) , ORAL
     Route: 048
     Dates: start: 20080908, end: 20081129
  2. CAPECITABINE (CAPECITABINE) [Suspect]
     Dosage: (800 MG, QD D 1 TO 14, CONTINUOUSLY D 15 TO 21) ,ORAL
     Route: 048
     Dates: start: 20080908, end: 20081129
  3. CAPECITABINE (CAPECITABINE) [Suspect]
  4. OXALIPLATIN [Suspect]
     Dosage: (240 MG, Q3W) ,INTRAVENOUS
     Route: 042
     Dates: start: 20080908, end: 20081129

REACTIONS (6)
  - ABDOMINAL DISTENSION [None]
  - CARDIAC ARREST [None]
  - DIARRHOEA [None]
  - DYSPNOEA [None]
  - METABOLIC ACIDOSIS [None]
  - VOMITING [None]
